FAERS Safety Report 8242437-9 (Version None)
Quarter: 2012Q1

REPORT INFORMATION
  Report Type: 
  Country: None (occurrence: None)
  Receive Date: 20120329
  Receipt Date: 20120319
  Transmission Date: 20120608
  Serious: Yes (Other)
  Sender: FDA-Public Use
  Company Number: CZ-ACCORD-012805

PATIENT
  Age: 42 Year
  Sex: Female

DRUGS (8)
  1. CYCLOPHOSPHAMIDE [Suspect]
     Indication: BREAST CANCER
     Dosage: INFUSION
  2. RANITIDINE [Suspect]
     Indication: PREMEDICATION
  3. PACLITAXEL [Suspect]
     Indication: BREAST CANCER
     Dosage: TOTAL DOSE TO 150 MG, APPLIED FOR 1 H, 12 WEEKLY, INFUSION
  4. DOCETAXEL [Suspect]
     Indication: BREAST CANCER
     Dosage: TOTAL DOSE 167 MG, APPLIED FOR 1 H, 4 CYCLES.
     Route: 042
  5. BISULEPIN [Suspect]
     Indication: PREMEDICATION
     Dosage: BISULEPIN 2 MG 12 H
  6. ONDANSETRON [Suspect]
     Indication: PREMEDICATION
  7. DEXAMETHASONE [Suspect]
     Indication: PREMEDICATION
  8. ADRIAMYCIN PFS [Concomitant]
     Indication: BREAST CANCER
     Dosage: 60 MG/M2  4 CYCLES

REACTIONS (1)
  - PSYCHOTIC DISORDER [None]
